FAERS Safety Report 7202961-4 (Version None)
Quarter: 2010Q4

REPORT INFORMATION
  Report Type: 
  Country: None (occurrence: None)
  Receive Date: 20101229
  Receipt Date: 20101217
  Transmission Date: 20110411
  Serious: Yes (Disabling, Other)
  Sender: FDA-Public Use
  Company Number: US-ELI_LILLY_AND_COMPANY-US201010004553

PATIENT
  Sex: Female
  Weight: 81.633 kg

DRUGS (8)
  1. ZYPREXA [Suspect]
     Indication: BIPOLAR DISORDER
     Dosage: 5 MG, DAILY (1/D)
     Dates: start: 19990101
  2. ZYPREXA [Suspect]
     Dosage: 2.5 MG, DAILY (1/D)
     Dates: end: 20100601
  3. HALDOL [Concomitant]
  4. DEPAKOTE [Concomitant]
  5. PAXIL [Concomitant]
  6. FLUOXETINE [Concomitant]
     Dosage: UNK, UNK
     Dates: start: 20100601
  7. KLONOPIN [Concomitant]
  8. TRICOR [Concomitant]

REACTIONS (18)
  - ABDOMINAL PAIN UPPER [None]
  - ASTHMA [None]
  - BLOOD CHOLESTEROL INCREASED [None]
  - BLOOD TRIGLYCERIDES INCREASED [None]
  - BRONCHITIS [None]
  - BRUXISM [None]
  - COUGH [None]
  - HYPERHIDROSIS [None]
  - HYPERSOMNIA [None]
  - RESPIRATORY DISORDER [None]
  - RHINORRHOEA [None]
  - SNEEZING [None]
  - TYPE 2 DIABETES MELLITUS [None]
  - URINARY INCONTINENCE [None]
  - VISUAL ACUITY REDUCED [None]
  - VOMITING [None]
  - WEIGHT DECREASED [None]
  - WEIGHT INCREASED [None]
